FAERS Safety Report 5372743-7 (Version None)
Quarter: 2007Q2

REPORT INFORMATION
  Report Type: 
  Country: None (occurrence: None)
  Receive Date: 20070619
  Receipt Date: 20061004
  Transmission Date: 20071010
  Serious: Yes (Life-Threatening, Hospitalization)
  Sender: FDA-Public Use
  Company Number: WAES 0610USA03786

PATIENT
  Age: 62 Year
  Sex: Male

DRUGS (3)
  1. COZAAR [Suspect]
     Indication: BLOOD PRESSURE INCREASED
     Dosage: 50 MG/DAILY/PO
     Route: 048
  2. LOPRESSOR [Suspect]
     Indication: BLOOD PRESSURE INCREASED
     Dosage: 50 MG/TID
  3. ZOCOR [Concomitant]

REACTIONS (2)
  - ANAEMIA [None]
  - HYPOTENSION [None]
